FAERS Safety Report 6957489-3 (Version None)
Quarter: 2010Q3

REPORT INFORMATION
  Report Type: 
  Country: None (occurrence: None)
  Receive Date: 20100831
  Receipt Date: 20100819
  Transmission Date: 20110219
  Serious: Yes (Other)
  Sender: FDA-Public Use
  Company Number: US-WYE-H14999210

PATIENT
  Sex: Female
  Weight: 58.11 kg

DRUGS (10)
  1. PROTONIX [Suspect]
     Indication: OESOPHAGEAL DISORDER
     Route: 048
     Dates: start: 20070101, end: 20091101
  2. PROTONIX [Suspect]
     Indication: GASTROINTESTINAL HAEMORRHAGE
     Dosage: WAS CUTING THE TABLETS IN HALF
     Dates: start: 20091101
  3. BENICAR [Concomitant]
  4. ZITHROMAX [Suspect]
     Dosage: UNKNOWN
  5. IRON [Concomitant]
  6. METFORMIN [Suspect]
     Indication: DIABETES MELLITUS
  7. GLYBURIDE [Suspect]
     Indication: DIABETES MELLITUS
     Dosage: 5 MG BID, PLUS 2.5 MG ONCE DAILY
     Dates: end: 20100401
  8. GLYBURIDE [Suspect]
     Dosage: INCREASED TO 10 MG BID, PLUS 5 MG ONCE DAILY
     Dates: start: 20100401
  9. NORVASC [Concomitant]
  10. VITAMINS [Concomitant]

REACTIONS (8)
  - BLOOD IRON DECREASED [None]
  - BODY TEMPERATURE INCREASED [None]
  - CHRONIC MYELOID LEUKAEMIA [None]
  - CONDITION AGGRAVATED [None]
  - DIABETES MELLITUS [None]
  - DISCOMFORT [None]
  - DRUG ADMINISTRATION ERROR [None]
  - GENERAL PHYSICAL HEALTH DETERIORATION [None]
